FAERS Safety Report 5094494-9 (Version None)
Quarter: 2006Q3

REPORT INFORMATION
  Report Type: 
  Country: None (occurrence: None)
  Receive Date: 20060829
  Receipt Date: 20060703
  Transmission Date: 20061208
  Serious: No
  Sender: FDA-Public Use
  Company Number: S06-FRA-02688-01

PATIENT
  Age: 35 Year
  Sex: Female

DRUGS (4)
  1. SEROPRAM (CITALOPRAM HYDROBROMIDE) [Suspect]
     Dosage: 1 UNITS QD PO
     Route: 048
  2. TRANXENE [Suspect]
  3. IBUPROFEN [Suspect]
     Indication: MIGRAINE
     Dosage: 2 TABLET QD
  4. OXAZEPAM [Suspect]
     Dosage: 10 MG QD

REACTIONS (3)
  - DRUG EXPOSURE DURING PREGNANCY [None]
  - MIGRAINE [None]
  - PREGNANCY [None]
